FAERS Safety Report 15896474 (Version 1)
Quarter: 2019Q1

REPORT INFORMATION
  Report Type: Spontaneous
  Country: CN (occurrence: CN)
  Receive Date: 20190131
  Receipt Date: 20190131
  Transmission Date: 20190417
  Serious: Yes (Other)
  Sender: FDA-Public Use
  Company Number: CN-PFIZER INC-2019038901

PATIENT
  Age: 78 Year
  Sex: Male
  Weight: 64 kg

DRUGS (2)
  1. SULPERAZON [Suspect]
     Active Substance: CEFOPERAZONE SODIUM\SULBACTAM SODIUM
     Dosage: 3 G, 2X/DAY
     Route: 041
     Dates: start: 20181202, end: 20181210
  2. VFEND [Suspect]
     Active Substance: VORICONAZOLE
     Dosage: 0.2 G, 2X/DAY
     Route: 041
     Dates: start: 20181114, end: 20181207

REACTIONS (2)
  - Hepatic function abnormal [Recovering/Resolving]
  - Prothrombin time prolonged [Recovering/Resolving]

NARRATIVE: CASE EVENT DATE: 20181204
